FAERS Safety Report 10047682 (Version 2)
Quarter: 2014Q2

REPORT INFORMATION
  Report Type: Report from Study
  Country: FR (occurrence: FR)
  Receive Date: 20140331
  Receipt Date: 20140402
  Transmission Date: 20141212
  Serious: Yes (Hospitalization)
  Sender: FDA-Public Use
  Company Number: FR-PFIZER INC-2014088117

PATIENT
  Age: 57 Year
  Sex: Female

DRUGS (3)
  1. ESTRACYT [Suspect]
     Dosage: UNK
     Route: 048
     Dates: start: 20131220
  2. COTAREG [Concomitant]
     Dosage: UNK
     Dates: start: 2000
  3. ADALATE [Concomitant]
     Dosage: UNK

REACTIONS (5)
  - Nausea [Recovered/Resolved]
  - Decreased appetite [Unknown]
  - Weight decreased [Unknown]
  - General physical health deterioration [Recovered/Resolved]
  - Bronchitis [Recovered/Resolved]
